FAERS Safety Report 6877792-5 (Version None)
Quarter: 2010Q3

REPORT INFORMATION
  Report Type: 
  Country: None (occurrence: None)
  Receive Date: 20100727
  Receipt Date: 20091123
  Transmission Date: 20110219
  Serious: No
  Sender: FDA-Public Use
  Company Number: US-ABBOTT-09P-163-0611068-00

PATIENT
  Sex: Female

DRUGS (1)
  1. SYNTHROID [Suspect]
     Indication: HYPOTHYROIDISM
     Dates: start: 20091118, end: 20091122

REACTIONS (4)
  - CHEST PAIN [None]
  - DIZZINESS [None]
  - EUPHORIC MOOD [None]
  - PALPITATIONS [None]
